FAERS Safety Report 14226703 (Version 1)
Quarter: 2017Q4

REPORT INFORMATION
  Report Type: Spontaneous
  Country: US (occurrence: US)
  Receive Date: 20171127
  Receipt Date: 20171127
  Transmission Date: 20180321
  Serious: No
  Sender: FDA-Public Use
  Company Number: US-SOMERSET-2017-US-000007

PATIENT
  Age: 67 Year
  Sex: Female

DRUGS (1)
  1. CYANOCOBALAMIN INJECTION - 1ML [Suspect]
     Active Substance: CYANOCOBALAMIN
     Dosage: 1 ML ONCE PER WEEK FOR 3 WEEKS
     Dates: start: 20170104, end: 20170117

REACTIONS (2)
  - Urticaria [None]
  - Rash [None]
